FAERS Safety Report 25375003 (Version 1)
Quarter: 2025Q2

REPORT INFORMATION
  Report Type: Report from Study
  Country: CA (occurrence: CA)
  Receive Date: 20250529
  Receipt Date: 20250529
  Transmission Date: 20250716
  Serious: Yes (Hospitalization)
  Sender: TAKEDA
  Company Number: CA-TAKEDA-2023TUS002453

PATIENT
  Sex: Male
  Weight: 79 kg

DRUGS (4)
  1. HUMAN IMMUNOGLOBULIN G [Suspect]
     Active Substance: HUMAN IMMUNOGLOBULIN G
     Indication: Immunodeficiency common variable
     Dosage: 5 GRAM, 1/WEEK
  2. HUMAN IMMUNOGLOBULIN G [Suspect]
     Active Substance: HUMAN IMMUNOGLOBULIN G
     Indication: Primary immunodeficiency syndrome
     Dosage: 5 GRAM, 1/WEEK
     Dates: start: 20230224
  3. HUMAN IMMUNOGLOBULIN G [Suspect]
     Active Substance: HUMAN IMMUNOGLOBULIN G
     Dosage: 5 GRAM, 1/WEEK
  4. Covid-19 vaccine [Concomitant]

REACTIONS (11)
  - Chest pain [Recovering/Resolving]
  - Pyrexia [Recovering/Resolving]
  - Dyspnoea [Recovering/Resolving]
  - Cough [Recovering/Resolving]
  - Respiratory tract infection [Recovering/Resolving]
  - Intentional underdose [Unknown]
  - Respiratory tract congestion [Recovered/Resolved]
  - Sinusitis [Recovered/Resolved]
  - Toothache [Recovered/Resolved]
  - Illness [Recovered/Resolved]
  - Epistaxis [Recovered/Resolved]
